FAERS Safety Report 4624143-2 (Version None)
Quarter: 2005Q1

REPORT INFORMATION
  Report Type: 
  Country: None (occurrence: None)
  Receive Date: 20050331
  Receipt Date: 20050323
  Transmission Date: 20050727
  Serious: Yes (Other)
  Sender: FDA-Public Use
  Company Number: US-GLAXOSMITHKLINE-A0551033A

PATIENT
  Age: 62 Year
  Sex: Male

DRUGS (3)
  1. LAMICTAL [Suspect]
     Indication: EPILEPSY
     Route: 048
  2. RADIATION THERAPY [Suspect]
     Indication: PROSTATE CANCER
  3. HERBAL SUPPLEMENTS [Concomitant]

REACTIONS (4)
  - CYSTITIS [None]
  - CYSTITIS RADIATION [None]
  - GASTROENTERITIS RADIATION [None]
  - PROCTITIS [None]
